FAERS Safety Report 23284409 (Version 2)
Quarter: 2023Q4

REPORT INFORMATION
  Report Type: Spontaneous
  Country: US (occurrence: US)
  Receive Date: 20231211
  Receipt Date: 20231227
  Transmission Date: 20240110
  Serious: Yes (Other)
  Sender: FDA-Public Use
  Company Number: US-MYLANLABS-2023M1103849

PATIENT
  Age: 83 Year
  Sex: Male

DRUGS (1)
  1. FONDAPARINUX [Suspect]
     Active Substance: FONDAPARINUX
     Indication: Anticoagulant therapy
     Dosage: 7.5 MILLIGRAM, TID
     Route: 058
     Dates: start: 202302

REACTIONS (2)
  - Disease recurrence [Recovered/Resolved]
  - Bullous haemorrhagic dermatosis [Recovered/Resolved]

NARRATIVE: CASE EVENT DATE: 20230201
